FAERS Safety Report 7581123-5 (Version None)
Quarter: 2011Q2

REPORT INFORMATION
  Report Type: 
  Country: None (occurrence: None)
  Receive Date: 20110629
  Receipt Date: 20110621
  Transmission Date: 20111010
  Serious: Yes (Life-Threatening)
  Sender: FDA-Public Use
  Company Number: TR-BAXTER-2011BH016189

PATIENT
  Age: 14 Year
  Sex: Male
  Weight: 50 kg

DRUGS (6)
  1. AMIKACIN [Concomitant]
     Indication: PRODUCT USED FOR UNKNOWN INDICATION
     Route: 065
  2. GAMMAGARD LIQUID [Suspect]
     Indication: OFF LABEL USE
     Route: 042
     Dates: start: 20110512, end: 20110512
  3. TARGOCID [Concomitant]
     Indication: PRODUCT USED FOR UNKNOWN INDICATION
     Route: 065
  4. PRIMAXIN [Concomitant]
     Indication: PRODUCT USED FOR UNKNOWN INDICATION
     Route: 065
  5. FLUCONAZOLE [Concomitant]
     Indication: PRODUCT USED FOR UNKNOWN INDICATION
     Route: 065
  6. GAMMAGARD LIQUID [Suspect]
     Indication: SEPSIS
     Route: 042
     Dates: start: 20110512, end: 20110512

REACTIONS (7)
  - INCORRECT DRUG ADMINISTRATION RATE [None]
  - PYREXIA [None]
  - CHILLS [None]
  - ANAPHYLACTIC REACTION [None]
  - FLANK PAIN [None]
  - COUGH [None]
  - HYPOAESTHESIA [None]
